FAERS Safety Report 13839687 (Version 1)
Quarter: 2017Q3

REPORT INFORMATION
  Report Type: Spontaneous
  Country: US (occurrence: US)
  Receive Date: 20170805
  Receipt Date: 20170805
  Transmission Date: 20171127
  Serious: Yes (Hospitalization)
  Sender: FDA-Public Use
  Company Number: None

PATIENT
  Age: 55 Year
  Sex: Male

DRUGS (21)
  1. BISACODYL. [Concomitant]
     Active Substance: BISACODYL
  2. FERROUS SULFATE. [Concomitant]
     Active Substance: FERROUS SULFATE
  3. INSULIN ASPART [Concomitant]
     Active Substance: INSULIN ASPART
  4. MYCOPHENOLATE [Concomitant]
     Active Substance: MYCOPHENOLIC ACID
  5. SIMVASTATIN. [Concomitant]
     Active Substance: SIMVASTATIN
  6. TACROLIMUS. [Concomitant]
     Active Substance: TACROLIMUS
  7. PREDNISONE. [Concomitant]
     Active Substance: PREDNISONE
  8. HYDRALAZINE [Concomitant]
     Active Substance: HYDRALAZINE HYDROCHLORIDE
  9. HYDROMORPHONE [Concomitant]
     Active Substance: HYDROMORPHONE
  10. FLUDROCORTISONE [Concomitant]
     Active Substance: FLUDROCORTISONE
  11. TACROLIMUS. [Suspect]
     Active Substance: TACROLIMUS
     Indication: IMMUNOSUPPRESSION
     Route: 048
     Dates: start: 20170130, end: 20170131
  12. ATOVAQUONE. [Concomitant]
     Active Substance: ATOVAQUONE
  13. CALCIUM GLUCONATE. [Concomitant]
     Active Substance: CALCIUM GLUCONATE
  14. DEXTROSE 50% [Concomitant]
     Active Substance: DEXTROSE
  15. SODIUM BICARBONATE. [Concomitant]
     Active Substance: SODIUM BICARBONATE
  16. AMIODARONE [Concomitant]
     Active Substance: AMIODARONE
  17. INSULIN GLARGINE [Concomitant]
     Active Substance: INSULIN GLARGINE
  18. LORAZEPAM. [Concomitant]
     Active Substance: LORAZEPAM
  19. ONDANSETRON [Concomitant]
     Active Substance: ONDANSETRON
  20. ACETAMINOPHEN. [Concomitant]
     Active Substance: ACETAMINOPHEN
  21. AMLODIPINE [Concomitant]
     Active Substance: AMLODIPINE BESYLATE

REACTIONS (3)
  - Nephropathy toxic [None]
  - Blood magnesium decreased [None]
  - Hyperkalaemia [None]

NARRATIVE: CASE EVENT DATE: 20170131
